FAERS Safety Report 4733262-1 (Version None)
Quarter: 2005Q3

REPORT INFORMATION
  Report Type: 
  Country: None (occurrence: None)
  Receive Date: 20050725
  Receipt Date: 20050314
  Transmission Date: 20060218
  Serious: Yes (Other)
  Sender: FDA-Public Use
  Company Number: USA-2005-0019317

PATIENT
  Age: 43 Year
  Sex: Male

DRUGS (4)
  1. MS CONTIN [Suspect]
     Indication: PAIN
     Dosage: 180 MG, DAILY
  2. DILANTIN [Suspect]
     Dosage: SEE TEXT
  3. RITALIN [Suspect]
  4. THORAZINE [Suspect]

REACTIONS (3)
  - DRUG WITHDRAWAL CONVULSIONS [None]
  - FALL [None]
  - JOINT DISLOCATION [None]
